FAERS Safety Report 5527949-0 (Version None)
Quarter: 2007Q4

REPORT INFORMATION
  Report Type: 
  Country: None (occurrence: None)
  Receive Date: 20071128
  Receipt Date: 20071116
  Transmission Date: 20080405
  Serious: Yes (Other)
  Sender: FDA-Public Use
  Company Number: JP-ROCHE-522574

PATIENT
  Age: 58 Year
  Sex: Male
  Weight: 56 kg

DRUGS (11)
  1. COPEGUS [Suspect]
     Dosage: 1200 MG DIVIDED INTO 2 DOSES. DOSE DECREASED
     Route: 048
     Dates: start: 20070822, end: 20070917
  2. COPEGUS [Suspect]
     Route: 048
     Dates: start: 20070918
  3. PEGASYS [Suspect]
     Dosage: DOSE DECREASED
     Route: 058
     Dates: start: 20070822, end: 20070913
  4. PEGASYS [Suspect]
     Route: 058
     Dates: start: 20070920
  5. EURODIN [Suspect]
     Indication: DRUG USE FOR UNKNOWN INDICATION
     Route: 048
  6. HALCION [Concomitant]
     Route: 048
  7. DEPAS [Concomitant]
     Route: 048
  8. BLOPRESS [Concomitant]
     Route: 048
  9. LOXONIN [Concomitant]
     Route: 048
     Dates: start: 20070822
  10. KETOPROFEN [Concomitant]
     Dosage: FORM TAPE
     Route: 061
  11. AMLODIN [Concomitant]
     Route: 048
     Dates: end: 20071018

REACTIONS (1)
  - MEMORY IMPAIRMENT [None]
